APPROVED DRUG PRODUCT: UNASYN
Active Ingredient: AMPICILLIN SODIUM; SULBACTAM SODIUM
Strength: EQ 2GM BASE/VIAL;EQ 1GM BASE/VIAL
Dosage Form/Route: INJECTABLE;INJECTION
Application: N050608 | Product #001 | TE Code: AP
Applicant: PFIZER INC
Approved: Dec 31, 1986 | RLD: Yes | RS: Yes | Type: RX